FAERS Safety Report 17291285 (Version 1)
Quarter: 2020Q1

REPORT INFORMATION
  Report Type: Spontaneous
  Country: US (occurrence: US)
  Receive Date: 20200121
  Receipt Date: 20200121
  Transmission Date: 20200409
  Serious: Yes (Other)
  Sender: FDA-Public Use
  Company Number: US-HIKMA PHARMACEUTICALS USA INC.-US-H14001-20-00122

PATIENT
  Age: 74 Year
  Sex: Female

DRUGS (2)
  1. QUETIAPINE. [Suspect]
     Active Substance: QUETIAPINE
     Indication: PRODUCT USED FOR UNKNOWN INDICATION
     Route: 065
  2. LITHIUM CARBONATE. [Suspect]
     Active Substance: LITHIUM CARBONATE
     Indication: PRODUCT USED FOR UNKNOWN INDICATION
     Route: 065

REACTIONS (12)
  - Dysphagia [Unknown]
  - Muscle rigidity [Unknown]
  - Cataract [Unknown]
  - Cardiac disorder [Unknown]
  - Haemorrhage [Unknown]
  - Movement disorder [Unknown]
  - Renal disorder [Unknown]
  - Blindness [Unknown]
  - Hypersensitivity [Unknown]
  - Thyroid disorder [Unknown]
  - Dizziness [Unknown]
  - Blood pressure abnormal [Unknown]
